FAERS Safety Report 17108625 (Version 3)
Quarter: 2019Q4

REPORT INFORMATION
  Report Type: Spontaneous
  Country: IE (occurrence: IE)
  Receive Date: 20191204
  Receipt Date: 20191211
  Transmission Date: 20200122
  Serious: Yes (Other)
  Sender: FDA-Public Use
  Company Number: IE-JNJFOC-20191137977

PATIENT
  Age: 3 Year
  Sex: Male
  Weight: 15 kg

DRUGS (1)
  1. CALPOL [Suspect]
     Active Substance: ACETAMINOPHEN
     Indication: ACCIDENTAL EXPOSURE TO PRODUCT BY CHILD
     Dosage: CONSUMED ALL OF THE LIQUID INSIDE BOTTLE (15 ML) 60 ML BOTTLE STRENGTH
     Route: 048
     Dates: start: 20191118, end: 20191118

REACTIONS (2)
  - Failure of child resistant mechanism for pharmaceutical product [Unknown]
  - Accidental overdose [Unknown]

NARRATIVE: CASE EVENT DATE: 20191118
